FAERS Safety Report 13252916 (Version 2)
Quarter: 2017Q1

REPORT INFORMATION
  Report Type: Report from Study
  Country: IN (occurrence: IN)
  Receive Date: 20170220
  Receipt Date: 20170303
  Transmission Date: 20170428
  Serious: Yes (Death, Other)
  Sender: FDA-Public Use
  Company Number: PHHY2014IN065816

PATIENT
  Age: 32 Year
  Sex: Female
  Weight: 59.7 kg

DRUGS (3)
  1. GLIVEC [Suspect]
     Active Substance: IMATINIB MESYLATE
     Dosage: 600 MG, QD
     Route: 048
     Dates: start: 20140528, end: 20160703
  2. GLIVEC [Suspect]
     Active Substance: IMATINIB MESYLATE
     Indication: CHRONIC MYELOID LEUKAEMIA
     Dosage: 400 MG, QD
     Route: 048
     Dates: start: 20130228, end: 20140527
  3. GLIVEC [Suspect]
     Active Substance: IMATINIB MESYLATE
     Dosage: 800 MG, QD
     Route: 048
     Dates: start: 20160704

REACTIONS (6)
  - Therapeutic response decreased [Unknown]
  - Chronic myeloid leukaemia [Fatal]
  - Local swelling [Unknown]
  - Malignant neoplasm progression [Fatal]
  - Pallor [Unknown]
  - Swelling face [Unknown]

NARRATIVE: CASE EVENT DATE: 20140521
